FAERS Safety Report 26058715 (Version 1)
Quarter: 2025Q4

REPORT INFORMATION
  Report Type: Spontaneous
  Country: GB (occurrence: GB)
  Receive Date: 20251118
  Receipt Date: 20251118
  Transmission Date: 20260118
  Serious: Yes (Disabling)
  Sender: CIPLA
  Company Number: GB-MHRA-WEBRADR-202511051104576160-GHQNC

PATIENT

DRUGS (3)
  1. TADALAFIL [Suspect]
     Active Substance: TADALAFIL
     Indication: Erectile dysfunction
     Dosage: 11 MILLIGRAM; UNK
     Route: 048
     Dates: start: 20250110, end: 20251105
  2. PRAVASTATIN [Concomitant]
     Active Substance: PRAVASTATIN
     Indication: Blood cholesterol
     Dosage: UNK
     Route: 065
  3. TADALAFIL [Concomitant]
     Active Substance: TADALAFIL
     Indication: Erectile dysfunction
     Dosage: UNK
     Route: 065

REACTIONS (1)
  - Dizziness postural [Recovered/Resolved]

NARRATIVE: CASE EVENT DATE: 20251104
